FAERS Safety Report 20944815 (Version 3)
Quarter: 2022Q3

REPORT INFORMATION
  Report Type: Spontaneous
  Country: US (occurrence: US)
  Receive Date: 20220610
  Receipt Date: 20220817
  Transmission Date: 20221027
  Serious: Yes (Hospitalization, Other)
  Sender: FDA-Public Use
  Company Number: US-SA-2022SA210638

PATIENT
  Age: 52 Year
  Sex: Male
  Weight: 77.7 kg

DRUGS (21)
  1. FABRAZYME [Suspect]
     Active Substance: AGALSIDASE BETA
     Indication: Fabry^s disease
     Dosage: 70 MG, QOW
     Route: 042
     Dates: start: 20181121
  2. METOPROLOL SUCCINATE [Concomitant]
     Active Substance: METOPROLOL SUCCINATE
  3. MYFORTIC [Concomitant]
     Active Substance: MYCOPHENOLATE SODIUM
  4. MAGNESIUM OXIDE [Concomitant]
     Active Substance: MAGNESIUM OXIDE
  5. ATORVASTATIN CALCIUM [Concomitant]
     Active Substance: ATORVASTATIN CALCIUM
  6. EPINEPHRINE [Concomitant]
     Active Substance: EPINEPHRINE
  7. .ALPHA.-TOCOPHEROL [Concomitant]
     Active Substance: .ALPHA.-TOCOPHEROL
  8. PREDNISONE [Concomitant]
     Active Substance: PREDNISONE
  9. STERILE WATER [Concomitant]
     Active Substance: WATER
  10. UNASYN [AMPICILLIN SODIUM;SULBACTAM SODIUM] [Concomitant]
  11. FLUCONAZOLE [Concomitant]
     Active Substance: FLUCONAZOLE
  12. DAPSONE [Concomitant]
     Active Substance: DAPSONE
  13. ZINC [Concomitant]
     Active Substance: ZINC
  14. FAMOTIDINE [Concomitant]
     Active Substance: FAMOTIDINE
  15. SODIUM CHLORIDE [Concomitant]
     Active Substance: SODIUM CHLORIDE
  16. TACROLIMUS [Concomitant]
     Active Substance: TACROLIMUS
  17. TAMSULOSIN HYDROCHLORIDE [Concomitant]
     Active Substance: TAMSULOSIN HYDROCHLORIDE
  18. SENSIPAR [Concomitant]
     Active Substance: CINACALCET HYDROCHLORIDE
  19. SODIUM CHLORIDE [Concomitant]
     Active Substance: SODIUM CHLORIDE
  20. PHOSPHORUS [Concomitant]
     Active Substance: PHOSPHORUS
  21. VITAMINS [Concomitant]
     Active Substance: VITAMINS

REACTIONS (7)
  - Urinary tract stoma complication [Unknown]
  - Device related infection [Unknown]
  - Kidney infection [Unknown]
  - Urinary tract infection [Unknown]
  - Pyrexia [Unknown]
  - Urinary tract pain [Unknown]
  - Pyrexia [Unknown]

NARRATIVE: CASE EVENT DATE: 20220501
